FAERS Safety Report 8500923 (Version 2)
Quarter: 2013Q1

REPORT INFORMATION
  Report Type: Spontaneous
  Country: US (occurrence: US)
  Receive Date: 20120410
  Receipt Date: 20130121
  Transmission Date: 20140127
  Serious: Yes (Other)
  Sender: FDA-Public Use
  Company Number: US-PFIZER INC-2012084163

PATIENT
  Age: 26 Year
  Sex: Female
  Weight: 89.8 kg

DRUGS (2)
  1. NORGESTREL,ETHINYL ESTRADIOL,PLACEBO [Suspect]
     Indication: CONTRACEPTION
     Dosage: UNK
     Dates: end: 2012
  2. PRENATAL VITAMINS [Concomitant]
     Dosage: UNK

REACTIONS (2)
  - Drug ineffective [Unknown]
  - Unintended pregnancy [Unknown]
